FAERS Safety Report 8361446-2 (Version None)
Quarter: 2012Q2

REPORT INFORMATION
  Report Type: 
  Country: None (occurrence: None)
  Receive Date: 20120515
  Receipt Date: 20120511
  Transmission Date: 20120825
  Serious: Yes (Other)
  Sender: FDA-Public Use
  Company Number: US-RB-039089-12

PATIENT
  Age: 45 Year
  Sex: Female

DRUGS (3)
  1. VITAMIN TAB [Concomitant]
     Indication: PRODUCT USED FOR UNKNOWN INDICATION
  2. SYNTHROID [Concomitant]
     Indication: PRODUCT USED FOR UNKNOWN INDICATION
  3. GUAIFENESIN [Suspect]
     Indication: PRODUCT USED FOR UNKNOWN INDICATION
     Dosage: ON 30-APR-2012 AT 1 DOSE AT 3PM THEN 9PM THEN 1AM THEN 1-MAY-2012 AT 9:45AM 20ML EACH TIME
     Route: 048
     Dates: start: 20120430

REACTIONS (4)
  - HYPERTENSION [None]
  - DIZZINESS [None]
  - VISION BLURRED [None]
  - VISUAL IMPAIRMENT [None]
